FAERS Safety Report 6159886-5 (Version None)
Quarter: 2009Q2

REPORT INFORMATION
  Report Type: 
  Country: None (occurrence: None)
  Receive Date: 20090420
  Receipt Date: 20090415
  Transmission Date: 20091009
  Serious: Yes (Death, Hospitalization)
  Sender: FDA-Public Use
  Company Number: PHEH2007US06400

PATIENT
  Sex: Female
  Weight: 59.41 kg

DRUGS (15)
  1. ZELNORM [Suspect]
     Indication: CONSTIPATION
     Dosage: 6 MG, BID
     Route: 048
     Dates: start: 20070329, end: 20070416
  2. RADIOTHERAPY [Concomitant]
  3. AMBIEN [Concomitant]
  4. CARAFATE [Concomitant]
  5. DAYPRO [Concomitant]
  6. DURAGESIC-100 [Concomitant]
     Route: 062
  7. FLEXERIL [Concomitant]
  8. FLONASE [Concomitant]
  9. POTASSIUM CHLORIDE [Concomitant]
  10. LORTAB [Concomitant]
  11. MEGACE [Concomitant]
  12. PROTONIX [Concomitant]
  13. REGLAN [Concomitant]
  14. GEMZAR [Concomitant]
  15. CARBOPLATIN [Concomitant]

REACTIONS (18)
  - ANXIETY [None]
  - BACK PAIN [None]
  - BRAIN NATRIURETIC PEPTIDE [None]
  - CARDIAC FAILURE CONGESTIVE [None]
  - CHEST PAIN [None]
  - CHILLS [None]
  - CONCOMITANT DISEASE PROGRESSION [None]
  - CORONARY ARTERIAL STENT INSERTION [None]
  - DEEP VEIN THROMBOSIS [None]
  - FATIGUE [None]
  - GASTROINTESTINAL DISORDER [None]
  - HYPERHIDROSIS [None]
  - LUNG NEOPLASM MALIGNANT [None]
  - MYOCARDIAL INFARCTION [None]
  - OEDEMA PERIPHERAL [None]
  - PAIN [None]
  - PULMONARY EMBOLISM [None]
  - VENA CAVA FILTER INSERTION [None]
